FAERS Safety Report 8764369 (Version 2)
Quarter: 2012Q4

REPORT INFORMATION
  Report Type: 
  Country: ES (occurrence: ES)
  Receive Date: 20120831
  Receipt Date: 20120905
  Transmission Date: 20130627
  Serious: Yes (Death)
  Sender: FDA-Public Use
  Company Number: PHHY2012ES074516

PATIENT
  Age: 59 Year
  Sex: Female

DRUGS (3)
  1. 5-FLUOROURACIL [Suspect]
     Indication: RECTAL CANCER
  2. FOLINIC ACID [Concomitant]
  3. OXALIPLATIN [Concomitant]

REACTIONS (5)
  - Hyperammonaemic encephalopathy [Fatal]
  - Coma [Fatal]
  - Brain oedema [Fatal]
  - Pupillary light reflex tests abnormal [Fatal]
  - Eye movement disorder [Fatal]
